FAERS Safety Report 9198982 (Version 1)
Quarter: 2013Q1

REPORT INFORMATION
  Report Type: Spontaneous
  Country: CO (occurrence: None)
  Receive Date: 20130326
  Receipt Date: 20130326
  Transmission Date: 20140127
  Serious: Yes (Other)
  Sender: FDA-Public Use
  Company Number: DSU-2013-02309

PATIENT
  Age: 79 Year
  Sex: Female

DRUGS (6)
  1. OLMETEC HCT (HYDROCHLOROTHIAZIDE, OLMESARTAN MEDOXOMIL) (TABLET) (HYDROCHLOROTHIAZIDE, OLMESARTAN MEDOXOMIL) [Suspect]
     Indication: HYPERTENSION
     Route: 048
     Dates: start: 2011
  2. CLOPIDOGREL (CLOPIDOGREL) [Concomitant]
  3. GLUCOPHAGE (METFORMIN) (METFORMIN) [Concomitant]
  4. OMEPRAZOL (OMEPRAZOLE) (OMEPRAZOLE) [Concomitant]
  5. METOPRALOL (METOPROLOL) (METOPROLOL) [Concomitant]
  6. FUROSEMIDE [Concomitant]

REACTIONS (2)
  - Transient ischaemic attack [None]
  - Senile dementia [None]
